FAERS Safety Report 5713873-7 (Version None)
Quarter: 2008Q2

REPORT INFORMATION
  Report Type: 
  Country: None (occurrence: None)
  Receive Date: 20080421
  Receipt Date: 20080404
  Transmission Date: 20081010
  Serious: Yes (Death, Hospitalization)
  Sender: FDA-Public Use
  Company Number: A-CH2008-20128

PATIENT
  Age: 81 Year
  Sex: Male

DRUGS (3)
  1. TRACLEER [Suspect]
     Indication: PULMONARY HYPERTENSION
     Dosage: 125 MG, BID, ORAL; ORAL;  62.5 MG, BID, ORAL
     Route: 048
     Dates: end: 20070501
  2. TRACLEER [Suspect]
     Indication: PULMONARY HYPERTENSION
     Dosage: 125 MG, BID, ORAL; ORAL;  62.5 MG, BID, ORAL
     Route: 048
     Dates: start: 20050201
  3. TREPROSTINIL (TREPROSTINIL) [Concomitant]

REACTIONS (1)
  - RIGHT VENTRICULAR FAILURE [None]
